FAERS Safety Report 12231651 (Version 2)
Quarter: 2016Q2

REPORT INFORMATION
  Report Type: Spontaneous
  Country: US (occurrence: US)
  Receive Date: 20160401
  Receipt Date: 20160503
  Transmission Date: 20160815
  Serious: Yes (Other)
  Sender: FDA-Public Use
  Company Number: US-SMITH AND NEPHEW, INC-2016SMT00286

PATIENT
  Age: 53 Year
  Sex: Male
  Weight: 93.88 kg

DRUGS (3)
  1. REGRANEX [Suspect]
     Active Substance: BECAPLERMIN
     Indication: WOUND
     Dosage: UNK, 1X/DAY
     Route: 061
     Dates: start: 201601, end: 201602
  2. PERCOCET [Concomitant]
     Active Substance: ACETAMINOPHEN\OXYCODONE HYDROCHLORIDE
     Indication: WOUND
     Dosage: UNK, 2X/DAY
  3. NOVOLIN [Concomitant]
     Active Substance: INSULIN HUMAN
     Dosage: 12 U, 2X/DAY

REACTIONS (3)
  - Gangrene [Recovered/Resolved]
  - Skin graft [Unknown]
  - Drug ineffective [Recovered/Resolved]

NARRATIVE: CASE EVENT DATE: 2016
